FAERS Safety Report 14229503 (Version 2)
Quarter: 2018Q4

REPORT INFORMATION
  Report Type: Spontaneous
  Country: FR (occurrence: FR)
  Receive Date: 20171128
  Receipt Date: 20181222
  Transmission Date: 20190204
  Serious: Yes (Hospitalization, Other)
  Sender: FDA-Public Use
  Company Number: FR-ACCORD-061371

PATIENT
  Age: 88 Year
  Sex: Male

DRUGS (17)
  1. BISOPROLOL [Concomitant]
     Active Substance: BISOPROLOL
  2. FUROSEMIDE. [Suspect]
     Active Substance: FUROSEMIDE
     Indication: PRODUCT USED FOR UNKNOWN INDICATION
  3. VERAPAMIL [Concomitant]
     Active Substance: VERAPAMIL HYDROCHLORIDE
     Dosage: LP 240 MG
  4. HEPARIN [Concomitant]
     Active Substance: HEPARIN SODIUM
  5. URAPIDIL [Concomitant]
     Active Substance: URAPIDIL
     Dosage: URAPIDIL IVSE
     Route: 042
  6. ATORVASTATIN/ATORVASTATIN CALCIUM [Suspect]
     Active Substance: ATORVASTATIN CALCIUM
     Indication: PRODUCT USED FOR UNKNOWN INDICATION
  7. AMLODIPINE [Concomitant]
     Active Substance: AMLODIPINE BESYLATE
  8. ALLOPURINOL. [Suspect]
     Active Substance: ALLOPURINOL
     Indication: PRODUCT USED FOR UNKNOWN INDICATION
  9. CLOPIDOGREL [Suspect]
     Active Substance: CLOPIDOGREL BISULFATE
     Indication: PRODUCT USED FOR UNKNOWN INDICATION
  10. SODIUM POLYSTYRENE SULFONATE. [Concomitant]
     Active Substance: SODIUM POLYSTYRENE SULFONATE
  11. RAMIPRIL. [Concomitant]
     Active Substance: RAMIPRIL
  12. ACETYLSALICYLIC ACID [Concomitant]
     Active Substance: ASPIRIN
     Dosage: SALICYLIC ACID 75 MG
  13. NAFTIDROFURYL/NAFTIDROFURYL OXALATE [Concomitant]
     Dosage: NAFTIDROFURYL SERENOA REPENS
  14. SODIUM POLYSTYRENE SULFONATE. [Concomitant]
     Active Substance: SODIUM POLYSTYRENE SULFONATE
  15. ALFUZOSIN [Suspect]
     Active Substance: ALFUZOSIN
     Indication: PRODUCT USED FOR UNKNOWN INDICATION
     Dosage: LP 10 MG
  16. FOSINOPRIL [Concomitant]
     Active Substance: FOSINOPRIL
  17. GLYCERYL TRINITRATE [Concomitant]
     Active Substance: NITROGLYCERIN
     Dosage: EPINITRIL IVSE

REACTIONS (6)
  - Fall [Unknown]
  - Dermo-hypodermitis [Unknown]
  - Agranulocytosis [Recovered/Resolved]
  - Pyrexia [Unknown]
  - Rhabdomyolysis [Unknown]
  - Neutropenia [Unknown]

NARRATIVE: CASE EVENT DATE: 2014
